FAERS Safety Report 8814106 (Version 1)
Quarter: 2012Q4

REPORT INFORMATION
  Report Type: Spontaneous
  Country: US (occurrence: None)
  Receive Date: 20120926
  Receipt Date: 20120926
  Transmission Date: 20130627
  Serious: Yes (Other)
  Sender: FDA-Public Use
  Company Number: None

PATIENT
  Age: 85 Year
  Sex: Male
  Weight: 74.84 kg

DRUGS (1)
  1. CLOPIDOGREL [Suspect]
     Indication: THROMBOSIS PROPHYLAXIS
     Dosage: 1 tablet
exp 8-15-13
     Route: 048
     Dates: start: 20120701, end: 20120831

REACTIONS (2)
  - Contusion [None]
  - Haemorrhage [None]
